FAERS Safety Report 24825507 (Version 1)
Quarter: 2025Q1

REPORT INFORMATION
  Report Type: Spontaneous
  Country: CN (occurrence: CN)
  Receive Date: 20250109
  Receipt Date: 20250109
  Transmission Date: 20250409
  Serious: Yes (Other)
  Sender: PFIZER
  Company Number: CN-PFIZER INC-PV202500002706

PATIENT
  Age: 38 Year
  Sex: Female
  Weight: 76.5 kg

DRUGS (1)
  1. HEMABATE [Suspect]
     Active Substance: CARBOPROST TROMETHAMINE
     Indication: Uterine hypotonus
     Dosage: 250 UG, 1X/DAY
     Route: 041
     Dates: start: 20240830, end: 20240830

REACTIONS (6)
  - Chest discomfort [Recovering/Resolving]
  - Suffocation feeling [Recovering/Resolving]
  - Rash [Recovering/Resolving]
  - Oxygen saturation decreased [Recovering/Resolving]
  - Oropharyngeal discomfort [Recovering/Resolving]
  - Off label use [Unknown]

NARRATIVE: CASE EVENT DATE: 20240830
